FAERS Safety Report 8001902-X (Version None)
Quarter: 2011Q4

REPORT INFORMATION
  Report Type: 
  Country: None (occurrence: None)
  Receive Date: 20111222
  Receipt Date: 20111219
  Transmission Date: 20120403
  Serious: Yes (Death, Congenital Anomaly)
  Sender: FDA-Public Use
  Company Number: US-ABBOTT-11P-163-0884362-00

PATIENT

DRUGS (6)
  1. NORVIR [Suspect]
     Indication: MATERNAL EXPOSURE TIMING UNSPECIFIED
     Route: 064
  2. ZIAGEN [Suspect]
     Indication: MATERNAL EXPOSURE TIMING UNSPECIFIED
     Route: 064
  3. TRUVADA [Suspect]
     Indication: MATERNAL EXPOSURE TIMING UNSPECIFIED
     Route: 064
  4. INTELENCE [Suspect]
     Indication: MATERNAL EXPOSURE TIMING UNSPECIFIED
  5. EPIVIR [Suspect]
     Indication: MATERNAL EXPOSURE TIMING UNSPECIFIED
     Route: 064
  6. REYATAZ [Suspect]
     Indication: MATERNAL EXPOSURE TIMING UNSPECIFIED
     Route: 064

REACTIONS (5)
  - FOETAL EXPOSURE DURING PREGNANCY [None]
  - DEATH [None]
  - EXOMPHALOS [None]
  - PREMATURE RUPTURE OF MEMBRANES [None]
  - ABORTION SPONTANEOUS [None]
